FAERS Safety Report 4944276-0 (Version None)
Quarter: 2006Q1

REPORT INFORMATION
  Report Type: 
  Country: None (occurrence: None)
  Receive Date: 20060315
  Receipt Date: 20060313
  Transmission Date: 20060701
  Serious: Yes (Life-Threatening, Hospitalization, Other)
  Sender: FDA-Public Use
  Company Number: US-GLAXOSMITHKLINE-A0597350A

PATIENT
  Age: 46 Year
  Sex: Female

DRUGS (12)
  1. ZOFRAN [Suspect]
     Indication: PROPHYLAXIS OF NAUSEA AND VOMITING
     Dosage: 4MG SINGLE DOSE
     Route: 048
  2. VICODIN [Concomitant]
  3. DURAGESIC-100 [Concomitant]
  4. ZANAFLEX [Concomitant]
  5. PHENERGAN [Concomitant]
  6. PREVACID [Concomitant]
  7. ZYRTEC [Concomitant]
  8. MULTI-VITAMIN [Concomitant]
  9. VIACTIV [Concomitant]
  10. IRON [Concomitant]
  11. BENADRYL [Concomitant]
  12. MAALOX FAST BLOCKER [Concomitant]

REACTIONS (8)
  - ANAPHYLACTIC REACTION [None]
  - DYSPNOEA [None]
  - PHARMACEUTICAL PRODUCT COMPLAINT [None]
  - SWELLING [None]
  - SWELLING FACE [None]
  - TACHYCARDIA [None]
  - THROAT IRRITATION [None]
  - TONSILLAR DISORDER [None]
